FAERS Safety Report 8337543-4 (Version None)
Quarter: 2012Q2

REPORT INFORMATION
  Report Type: 
  Country: None (occurrence: None)
  Receive Date: 20120504
  Receipt Date: 20120502
  Transmission Date: 20120825
  Serious: No
  Sender: FDA-Public Use
  Company Number: US-PFIZER INC-2012108145

PATIENT
  Sex: Female
  Weight: 68 kg

DRUGS (7)
  1. LYRICA [Suspect]
     Dosage: 100 MG, 1X/DAY
     Route: 048
     Dates: end: 20111201
  2. METFORMIN [Concomitant]
     Indication: DIABETES MELLITUS
     Dosage: UNK
  3. PLAVIX [Concomitant]
     Dosage: UNK
  4. GABAPENTIN [Suspect]
     Indication: NEUROPATHY PERIPHERAL
     Dosage: 300 MG, 1X/DAY
     Route: 048
     Dates: start: 20111201
  5. LYRICA [Suspect]
     Indication: NEUROPATHY PERIPHERAL
     Dosage: 50 MG, 1X/DAY
     Route: 048
  6. AMARYL [Concomitant]
     Indication: DIABETES MELLITUS
     Dosage: UNK
  7. SINGULAIR [Concomitant]
     Dosage: UNK

REACTIONS (4)
  - DRUG INEFFECTIVE [None]
  - BLOOD GLUCOSE INCREASED [None]
  - BLOOD CHOLESTEROL INCREASED [None]
  - PAIN IN EXTREMITY [None]
